FAERS Safety Report 24524657 (Version 2)
Quarter: 2025Q1

REPORT INFORMATION
  Report Type: Report from Study
  Country: ES (occurrence: ES)
  Receive Date: 20241019
  Receipt Date: 20250326
  Transmission Date: 20250409
  Serious: Yes (Hospitalization)
  Sender: GENMAB
  Company Number: None

PATIENT
  Age: 72 Year
  Sex: Male
  Weight: 50 kg

DRUGS (43)
  1. EPCORITAMAB [Suspect]
     Active Substance: EPCORITAMAB
     Indication: Follicular lymphoma
     Dosage: 0.16 MILLIGRAM,QD PRIMING DOSE
     Route: 058
     Dates: start: 20211230, end: 20211230
  2. EPCORITAMAB [Suspect]
     Active Substance: EPCORITAMAB
     Indication: B-cell lymphoma
     Dosage: 160 MILLIGRAM,QD PRIMING DOSE
     Route: 058
     Dates: start: 20211231, end: 20211231
  3. EPCORITAMAB [Suspect]
     Active Substance: EPCORITAMAB
     Dosage: 800 MILLIGRAM,QD INTERMEDIATE DOSE
     Route: 058
     Dates: start: 20220107, end: 20220107
  4. EPCORITAMAB [Suspect]
     Active Substance: EPCORITAMAB
     Dosage: 48 MILLIGRAM,WEEKLY DOSE TEXT: 0.16 MG, PRIMING DOSEFULL DOSE
     Route: 058
     Dates: start: 20220114
  5. SODIUM FLUORIDE [Suspect]
     Active Substance: SODIUM FLUORIDE
     Indication: Product used for unknown indication
     Route: 042
  6. ASPIRIN [Suspect]
     Active Substance: ASPIRIN
     Indication: Product used for unknown indication
     Dosage: 100 MILLIGRAM,QD 100 MG, QD
     Route: 048
  7. ASPIRIN [Suspect]
     Active Substance: ASPIRIN
     Dosage: 100 MILLIGRAM,QD DOSE TEXT: 400 MG
     Route: 048
     Dates: start: 20211231
  8. ACYCLOVIR SODIUM [Suspect]
     Active Substance: ACYCLOVIR SODIUM
     Indication: Prophylaxis
     Dosage: 400 MILLIGRAM,Q12H 400 MG, Q12H
     Route: 065
     Dates: start: 20211230
  9. ACYCLOVIR SODIUM [Suspect]
     Active Substance: ACYCLOVIR SODIUM
     Dosage: 400 MILLIGRAM,Q12H DOSE TEXT: 800 MG
     Route: 065
     Dates: start: 20211231
  10. SODIUM CHLORIDE [Suspect]
     Active Substance: SODIUM CHLORIDE
     Indication: Product used for unknown indication
     Route: 065
  11. SULFAMETHOXAZOLE\TRIMETHOPRIM [Suspect]
     Active Substance: SULFAMETHOXAZOLE\TRIMETHOPRIM
     Indication: Product used for unknown indication
     Route: 048
     Dates: start: 20211230, end: 202112
  12. SULFAMETHOXAZOLE\TRIMETHOPRIM [Suspect]
     Active Substance: SULFAMETHOXAZOLE\TRIMETHOPRIM
     Route: 065
     Dates: start: 20211231, end: 20220217
  13. ACETAMINOPHEN [Suspect]
     Active Substance: ACETAMINOPHEN
     Indication: Pain prophylaxis
     Route: 048
     Dates: start: 20210107
  14. ACETAMINOPHEN [Suspect]
     Active Substance: ACETAMINOPHEN
     Route: 048
     Dates: start: 20211231, end: 20220114
  15. ACETAMINOPHEN [Suspect]
     Active Substance: ACETAMINOPHEN
     Route: 048
     Dates: start: 20210114
  16. LENALIDOMIDE [Suspect]
     Active Substance: LENALIDOMIDE
     Indication: B-cell lymphoma
     Route: 048
  17. LENALIDOMIDE [Suspect]
     Active Substance: LENALIDOMIDE
     Indication: Follicular lymphoma
  18. RITUXIMAB [Suspect]
     Active Substance: RITUXIMAB
     Indication: Follicular lymphoma
     Dosage: 375 MILLIGRAM,WEEKLY UNKGRADE 2LAST ADMIN DATE WAS DEC 2021
     Route: 042
     Dates: start: 20211230, end: 202112
  19. RITUXIMAB [Suspect]
     Active Substance: RITUXIMAB
     Indication: B-cell lymphoma
     Dosage: 375 MILLIGRAM,WEEKLY
     Route: 042
     Dates: start: 20211231
  20. RITUXIMAB [Suspect]
     Active Substance: RITUXIMAB
     Route: 042
     Dates: start: 20220107
  21. OMEPRAZOLE SODIUM [Suspect]
     Active Substance: OMEPRAZOLE SODIUM
     Indication: Prophylaxis
     Dosage: 20 MILLIGRAM, QD TEXT: 80 MG
     Route: 065
     Dates: start: 20211230, end: 20211231
  22. OMEPRAZOLE SODIUM [Suspect]
     Active Substance: OMEPRAZOLE SODIUM
     Dosage: 20 MILLIGRAM,QD
     Route: 065
     Dates: start: 20211231
  23. PREDNISONE ACETATE [Suspect]
     Active Substance: PREDNISONE ACETATE
     Indication: Product used for unknown indication
     Route: 048
     Dates: start: 20220101, end: 20220103
  24. PREDNISONE ACETATE [Suspect]
     Active Substance: PREDNISONE ACETATE
     Route: 048
     Dates: start: 20220108, end: 20220110
  25. PREDNISONE ACETATE [Suspect]
     Active Substance: PREDNISONE ACETATE
     Route: 048
     Dates: start: 20220115, end: 20220117
  26. PREDNISONE ACETATE [Suspect]
     Active Substance: PREDNISONE ACETATE
     Route: 048
     Dates: start: 20220117
  27. ALLOPURINOL SODIUM [Suspect]
     Active Substance: ALLOPURINOL SODIUM
     Indication: Follicular lymphoma
     Route: 048
  28. ALLOPURINOL SODIUM [Suspect]
     Active Substance: ALLOPURINOL SODIUM
     Indication: Prophylaxis
     Dosage: 300 MILLIGRAM,QD 300 MG, Q24HREGIMEN: 1
     Route: 048
     Dates: start: 20211230
  29. ALLOPURINOL SODIUM [Suspect]
     Active Substance: ALLOPURINOL SODIUM
     Route: 048
     Dates: start: 20211231, end: 20220217
  30. SULFAMETHOXAZOLE\TRIMETHOPRIM [Suspect]
     Active Substance: SULFAMETHOXAZOLE\TRIMETHOPRIM
     Indication: Product used for unknown indication
     Dosage: UNK, QD
     Route: 048
     Dates: start: 20211231, end: 20220217
  31. AMOXICILLIN\CLAVULANIC ACID [Suspect]
     Active Substance: AMOXICILLIN\CLAVULANIC ACID
     Indication: Product used for unknown indication
     Route: 065
     Dates: start: 20220122
  32. AMOXICILLIN\CLAVULANIC ACID [Suspect]
     Active Substance: AMOXICILLIN\CLAVULANIC ACID
     Route: 065
  33. ASPIRIN [Concomitant]
     Active Substance: ASPIRIN
     Indication: Product used for unknown indication
     Route: 065
  34. FERROUS SULFATE [Concomitant]
     Active Substance: FERROUS SULFATE
     Indication: Product used for unknown indication
     Route: 065
     Dates: start: 20210915
  35. DEXCHLORPHENIRAMINE [DEXCHLORPHENIRAMINE MALEATE] [Concomitant]
     Indication: Product used for unknown indication
     Route: 042
     Dates: start: 20211231
  36. DEXCHLORPHENIRAMINE [DEXCHLORPHENIRAMINE MALEATE] [Concomitant]
     Dosage: 5 MILLIGRAM, QD
     Route: 042
     Dates: start: 20220107, end: 20220107
  37. DEXCHLORPHENIRAMINE [DEXCHLORPHENIRAMINE MALEATE] [Concomitant]
     Route: 042
     Dates: start: 20220114
  38. VALGANCICLOVIR HYDROCHLORIDE [Concomitant]
     Active Substance: VALGANCICLOVIR HYDROCHLORIDE
     Indication: Product used for unknown indication
     Route: 065
     Dates: start: 20220103, end: 20220116
  39. METHYLPREDNISOLONE ACETATE [Concomitant]
     Active Substance: METHYLPREDNISOLONE ACETATE
     Indication: Prophylaxis
     Route: 042
     Dates: start: 20211231
  40. METHYLPREDNISOLONE ACETATE [Concomitant]
     Active Substance: METHYLPREDNISOLONE ACETATE
     Route: 042
     Dates: start: 20220107, end: 20220114
  41. METHYLPREDNISOLONE ACETATE [Concomitant]
     Active Substance: METHYLPREDNISOLONE ACETATE
     Route: 042
     Dates: start: 20220114
  42. ASPIRIN [Concomitant]
     Active Substance: ASPIRIN
     Indication: Product used for unknown indication
     Route: 065
  43. SULFAMETHOXAZOLE\TRIMETHOPRIM [Concomitant]
     Active Substance: SULFAMETHOXAZOLE\TRIMETHOPRIM
     Indication: Product used for unknown indication
     Route: 065
     Dates: start: 20211231

REACTIONS (7)
  - Hypotension [Recovered/Resolved]
  - Pyrexia [Recovered/Resolved]
  - Pyrexia [Recovered/Resolved]
  - Cytokine release syndrome [Recovered/Resolved]
  - Fibrin D dimer increased [Unknown]
  - C-reactive protein increased [Unknown]
  - Haemoglobin decreased [Unknown]

NARRATIVE: CASE EVENT DATE: 20220115
